FAERS Safety Report 6988097-6 (Version None)
Quarter: 2010Q3

REPORT INFORMATION
  Report Type: 
  Country: None (occurrence: None)
  Receive Date: 20100916
  Receipt Date: 20100911
  Transmission Date: 20110219
  Serious: Yes (Death)
  Sender: FDA-Public Use
  Company Number: A0881322A

PATIENT
  Sex: Male
  Weight: 50 kg

DRUGS (4)
  1. SERETIDE [Suspect]
     Indication: ASTHMA
     Dosage: 1PUFF TWICE PER DAY
     Route: 065
     Dates: start: 20100201, end: 20100816
  2. SPIRIVA [Concomitant]
     Dosage: 1PUFF PER DAY
     Dates: start: 20100201, end: 20100816
  3. BUDESONIDE + FORMOTEROL [Concomitant]
     Dosage: 2PUFF TWICE PER DAY
     Route: 065
     Dates: start: 20100201, end: 20100816
  4. SYMBICORT [Concomitant]
     Dosage: 2PUFF TWICE PER DAY
     Dates: start: 20100201, end: 20100816

REACTIONS (1)
  - RESPIRATORY FAILURE [None]
